FAERS Safety Report 4728501-7 (Version None)
Quarter: 2005Q3

REPORT INFORMATION
  Report Type: 
  Country: None (occurrence: None)
  Receive Date: 20050729
  Receipt Date: 20041207
  Transmission Date: 20060218
  Serious: Yes (Other)
  Sender: FDA-Public Use
  Company Number: TAP2004Q01389

PATIENT
  Age: 33 Year
  Sex: Female
  Weight: 50.9 kg

DRUGS (5)
  1. ZANTAC [Suspect]
     Route: 048
  2. PREVACID [Suspect]
     Route: 048
     Dates: start: 20041001, end: 20041029
  3. AMBIEN [Suspect]
     Indication: INSOMNIA
     Route: 048
  4. ZOLOFT [Suspect]
     Indication: DEPRESSION
     Route: 048
  5. ATIVAN [Suspect]
     Indication: ANXIETY
     Route: 048

REACTIONS (1)
  - LEUKOPENIA [None]
